FAERS Safety Report 21572639 (Version 5)
Quarter: 2023Q2

REPORT INFORMATION
  Report Type: Report from Study
  Country: US (occurrence: US)
  Receive Date: 20221109
  Receipt Date: 20230623
  Transmission Date: 20230722
  Serious: Yes (Other)
  Sender: FDA-Public Use
  Company Number: US-ABBVIE-4135459

PATIENT
  Sex: Male

DRUGS (4)
  1. HUMIRA [Suspect]
     Active Substance: ADALIMUMAB
     Indication: Crohn^s disease
     Dosage: FORM STRENGTH: 40 MG
     Route: 058
     Dates: start: 20220311, end: 20230407
  2. HUMIRA [Suspect]
     Active Substance: ADALIMUMAB
     Dosage: FORM STRENGTH: 40 MG
     Route: 058
  3. HUMIRA [Suspect]
     Active Substance: ADALIMUMAB
     Dosage: FORM STRENGTH: 40 MG
     Route: 058
  4. PREDNISONE [Concomitant]
     Active Substance: PREDNISONE
     Indication: Product used for unknown indication

REACTIONS (9)
  - Small intestinal stenosis [Recovering/Resolving]
  - Therapeutic product effect delayed [Recovering/Resolving]
  - Overgrowth bacterial [Unknown]
  - Burn of internal organs [Unknown]
  - Gastrointestinal inflammation [Unknown]
  - Arthropod bite [Unknown]
  - Burning sensation [Recovering/Resolving]
  - Inflammation [Unknown]
  - Crohn^s disease [Recovering/Resolving]
